FAERS Safety Report 6148478-X (Version None)
Quarter: 2009Q2

REPORT INFORMATION
  Report Type: 
  Country: None (occurrence: None)
  Receive Date: 20090408
  Receipt Date: 20090327
  Transmission Date: 20091009
  Serious: Yes (Other)
  Sender: FDA-Public Use
  Company Number: PHEH2009US01877

PATIENT
  Sex: Female
  Weight: 74.83 kg

DRUGS (1)
  1. COMBIPATCH [Suspect]
     Indication: MENOPAUSAL SYMPTOMS
     Dosage: 0.05/0.14 MG
     Dates: start: 20081101, end: 20090301

REACTIONS (4)
  - BREAST PAIN [None]
  - HERPES VIRUS INFECTION [None]
  - VULVOVAGINAL DRYNESS [None]
  - WITHDRAWAL SYNDROME [None]
